FAERS Safety Report 5405805-6 (Version None)
Quarter: 2007Q3

REPORT INFORMATION
  Report Type: 
  Country: None (occurrence: None)
  Receive Date: 20070802
  Receipt Date: 20070619
  Transmission Date: 20080115
  Serious: Yes (Hospitalization)
  Sender: FDA-Public Use
  Company Number: 000#5#2007-00195

PATIENT
  Age: 68 Year
  Sex: Male
  Weight: 73.4827 kg

DRUGS (16)
  1. ROTIGOTINE (DOSE UNKNOWN), PATCH (SILICONE) (ROTIGOTINE) [Suspect]
     Dosage: 12 MG/24H, 1 IN 1 D, TRANSDERMAL
     Route: 062
     Dates: start: 20040324, end: 20070618
  2. ROTIGOTINE-TRIAL [Concomitant]
  3. SELEGILINE HCL [Concomitant]
  4. ROFECOXIB [Concomitant]
  5. CARBIDOPA AND LEVODOPA [Concomitant]
  6. TOCOPHEROL CONCENTRATE CAP [Concomitant]
  7. IBUPROFEN TABLETS [Concomitant]
  8. CORTISONE ACETATE TAB [Concomitant]
  9. NAPROXEN SODIUM [Concomitant]
  10. TAMSULOSIN HCL [Concomitant]
  11. SOLIFENACIN [Concomitant]
  12. RASAGILINE [Concomitant]
  13. MACROGOL [Concomitant]
  14. BRINZOLAMIDE [Concomitant]
  15. BIMATOPROST [Concomitant]
  16. LATANOPROST [Concomitant]

REACTIONS (7)
  - ABNORMAL BEHAVIOUR [None]
  - AGITATION [None]
  - HALLUCINATION [None]
  - INSOMNIA [None]
  - MANIA [None]
  - ORAL INTAKE REDUCED [None]
  - THINKING ABNORMAL [None]
